FAERS Safety Report 8444756-X (Version None)
Quarter: 2012Q2

REPORT INFORMATION
  Report Type: 
  Country: None (occurrence: None)
  Receive Date: 20120618
  Receipt Date: 20120604
  Transmission Date: 20120825
  Serious: No
  Sender: FDA-Public Use
  Company Number: US-ASTRAZENECA-2012SE36615

PATIENT
  Age: 17 Year
  Sex: Female

DRUGS (2)
  1. SEROQUEL XR [Suspect]
     Indication: BIPOLAR DISORDER
     Route: 048
     Dates: start: 20120601
  2. ALBUTEROL [Suspect]
     Route: 065

REACTIONS (2)
  - OFF LABEL USE [None]
  - MUSCLE TWITCHING [None]
